FAERS Safety Report 5056866-8 (Version None)
Quarter: 2006Q2

REPORT INFORMATION
  Report Type: 
  Country: None (occurrence: None)
  Receive Date: 20060620
  Receipt Date: 20060306
  Transmission Date: 20061013
  Serious: Yes (Life-Threatening)
  Sender: FDA-Public Use
  Company Number: 06US000774

PATIENT
  Age: 43 Year
  Sex: Female

DRUGS (6)
  1. LITHIUM CARBONATE [Suspect]
     Indication: DRUG USE FOR UNKNOWN INDICATION
  2. OLANZAPINE [Suspect]
  3. VENLAFAXINE HCL [Concomitant]
  4. ZIPRASIDONE MESILATE (ZIPRASIDONE MESILATE) [Concomitant]
  5. ZOLPIDEM TARTRATE [Concomitant]
  6. DESIPRAMINE HYDROCHLORIDE [Concomitant]

REACTIONS (1)
  - MULTIPLE DRUG OVERDOSE [None]
